FAERS Safety Report 8542327-8 (Version None)
Quarter: 2012Q3

REPORT INFORMATION
  Report Type: 
  Country: None (occurrence: None)
  Receive Date: 20120726
  Receipt Date: 20111003
  Transmission Date: 20120928
  Serious: No
  Sender: FDA-Public Use
  Company Number: US-ASTRAZENECA-2011SE59153

PATIENT
  Age: 45 Year
  Sex: Male
  Weight: 89.8 kg

DRUGS (2)
  1. SEROQUEL [Suspect]
     Indication: SLEEP DISORDER
     Route: 048
     Dates: start: 20090101
  2. SEROQUEL [Suspect]
     Route: 048

REACTIONS (6)
  - PERSONALITY CHANGE [None]
  - OFF LABEL USE [None]
  - WRONG DRUG ADMINISTERED [None]
  - FATIGUE [None]
  - SOMNOLENCE [None]
  - DRUG EFFECT DECREASED [None]
